FAERS Safety Report 8070697-6 (Version None)
Quarter: 2011Q4

REPORT INFORMATION
  Report Type: 
  Country: None (occurrence: None)
  Receive Date: 20111221
  Receipt Date: 20110112
  Transmission Date: 20120403
  Serious: Yes (Hospitalization)
  Sender: FDA-Public Use
  Company Number: PHHY2010US81586

PATIENT
  Age: 46 Year
  Sex: Male
  Weight: 59 kg

DRUGS (2)
  1. EXJADE [Suspect]
     Indication: IRON OVERLOAD
     Dosage: 2000 MG, DAILY, ORAL
     Route: 048
     Dates: start: 20080511
  2. EXJADE [Suspect]
     Indication: SICKLE CELL ANAEMIA
     Dosage: 2000 MG, DAILY, ORAL
     Route: 048
     Dates: start: 20080511

REACTIONS (1)
  - SICKLE CELL ANAEMIA WITH CRISIS [None]
